FAERS Safety Report 9265199 (Version 1)
Quarter: 2013Q2

REPORT INFORMATION
  Report Type: Spontaneous
  Country: CH (occurrence: CH)
  Receive Date: 20130501
  Receipt Date: 20130501
  Transmission Date: 20140414
  Serious: Yes (Hospitalization)
  Sender: FDA-Public Use
  Company Number: CH-PFIZER INC-2013127155

PATIENT
  Age: 79 Year
  Sex: Male

DRUGS (1)
  1. CORDARONE [Suspect]
     Indication: ARRHYTHMIA
     Dosage: 200 MG TWICE DAILY
     Route: 048
     Dates: start: 20130411

REACTIONS (2)
  - Tachycardia [Recovered/Resolved]
  - Cough [Recovering/Resolving]
